FAERS Safety Report 20880181 (Version 1)
Quarter: 2022Q2

REPORT INFORMATION
  Report Type: Spontaneous
  Country: US (occurrence: US)
  Receive Date: 20220526
  Receipt Date: 20220526
  Transmission Date: 20220721
  Serious: No
  Sender: FDA-Public Use
  Company Number: US-RADIUS HEALTH INC.-2022US000519

PATIENT
  Sex: Female

DRUGS (4)
  1. TYMLOS [Suspect]
     Active Substance: ABALOPARATIDE
     Indication: Rheumatoid arthritis
     Dosage: 80 MICROGRAM, QD
     Route: 058
     Dates: start: 202201
  2. TYMLOS [Suspect]
     Active Substance: ABALOPARATIDE
     Indication: Vitamin B complex deficiency
  3. TYMLOS [Suspect]
     Active Substance: ABALOPARATIDE
     Indication: Rheumatoid factor positive
  4. HUMIRA [Concomitant]
     Active Substance: ADALIMUMAB
     Indication: Product used for unknown indication

REACTIONS (2)
  - Therapeutic response unexpected [Unknown]
  - Intentional product misuse [Unknown]
